FAERS Safety Report 9149087 (Version 1)
Quarter: 2013Q1

REPORT INFORMATION
  Report Type: Spontaneous
  Country: US (occurrence: None)
  Receive Date: 20130228
  Receipt Date: 20130228
  Transmission Date: 20140127
  Serious: No
  Sender: FDA-Public Use
  Company Number: None

PATIENT
  Sex: Female

DRUGS (1)
  1. FORTEO [Suspect]
     Indication: OSTEOPOROSIS
     Dosage: 20MCG  QD  SQ?DATES OF USE: PARTIALLY ILLEGIBLE
     Route: 058

REACTIONS (6)
  - Pain in extremity [None]
  - Pain in extremity [None]
  - Pain in extremity [None]
  - Neck pain [None]
  - Headache [None]
  - Activities of daily living impaired [None]
